FAERS Safety Report 8787909 (Version 1)
Quarter: 2012Q4

REPORT INFORMATION
  Report Type: Report from Study
  Country: US (occurrence: US)
  Receive Date: 20120914
  Receipt Date: 20120914
  Transmission Date: 20130627
  Serious: No
  Sender: FDA-Public Use
  Company Number: US-VERTEX PHARMACEUTICAL INC.-AE-2012-004201

PATIENT
  Age: 59 Year
  Sex: Male

DRUGS (9)
  1. INCIVEK [Suspect]
     Indication: HEPATITIS C
     Route: 048
  2. PEGASYS [Concomitant]
     Indication: HEPATITIS C
  3. RIBASPHERE [Concomitant]
     Indication: HEPATITIS C
  4. XALATAN [Concomitant]
  5. BUPROPION [Concomitant]
  6. LAMOTRIGINE [Concomitant]
  7. LORAZEPAM [Concomitant]
  8. BENZTROPINE [Concomitant]
  9. ABILIFY [Concomitant]

REACTIONS (2)
  - Rash [Unknown]
  - Anaemia [Unknown]
